FAERS Safety Report 9506059 (Version 1)
Quarter: 2013Q1

REPORT INFORMATION
  Report Type: Spontaneous
  Country: US (occurrence: None)
  Receive Date: 20130222
  Receipt Date: 20130222
  Transmission Date: 20140127
  Serious: Yes (Other)
  Sender: FDA-Public Use
  Company Number: FK201200698

PATIENT
  Sex: 0

DRUGS (2)
  1. XYLOCAINE MPF [Suspect]
     Indication: PRODUCT USED FOR UNKNOWN INDICATION
     Dosage: 500 MG, EVERY 7 DAYS AS NEEDED, INTRAVENOUS DRIP
     Route: 041
     Dates: start: 201112, end: 20120112
  2. SODIUM CHLORIDE (SODIUM CHLORIDE) (SODIUM CHLORIDE) [Concomitant]

REACTIONS (3)
  - Nausea [None]
  - Feeling abnormal [None]
  - Hypotension [None]
